FAERS Safety Report 9149897 (Version 3)
Quarter: 2013Q2

REPORT INFORMATION
  Report Type: Spontaneous
  Country: AU (occurrence: AU)
  Receive Date: 20130308
  Receipt Date: 20130415
  Transmission Date: 20140414
  Serious: Yes (Other)
  Sender: FDA-Public Use
  Company Number: AU-ASTRAZENECA-2013SE09357

PATIENT
  Age: 20 Year
  Sex: Female

DRUGS (3)
  1. PULMICORT TURBUHALER [Suspect]
     Route: 055
     Dates: start: 201207, end: 20130208
  2. PULMICORT TURBUHALER [Suspect]
     Route: 055
     Dates: start: 20130208
  3. ESTELLE-35 ED [Concomitant]
     Indication: CONTRACEPTION
     Route: 048

REACTIONS (2)
  - Asthma [Recovered/Resolved]
  - Circumstance or information capable of leading to medication error [Unknown]
